FAERS Safety Report 7804816-0 (Version None)
Quarter: 2011Q4

REPORT INFORMATION
  Report Type: 
  Country: None (occurrence: None)
  Receive Date: 20111010
  Receipt Date: 20111007
  Transmission Date: 20120403
  Serious: Yes (Death, Hospitalization)
  Sender: FDA-Public Use
  Company Number: US-B.I. PHARMACEUTICALS,INC./RIDGEFIELD-2011-BP-14800BP

PATIENT
  Age: 83 Year
  Sex: Male

DRUGS (13)
  1. NEXIUM [Concomitant]
     Indication: GASTROOESOPHAGEAL REFLUX DISEASE
  2. FLONASE [Concomitant]
  3. ALLEGRA [Concomitant]
  4. LIPITOR [Concomitant]
     Dosage: 10 MG
  5. LISINOPRIL [Concomitant]
     Indication: HYPERTENSION
     Dosage: 20 MG
  6. PLETAL [Concomitant]
     Indication: INTERMITTENT CLAUDICATION
     Dosage: 100 MG
  7. CLOBETASOL PROPIONATE [Concomitant]
     Indication: CUTANEOUS LUPUS ERYTHEMATOSUS
  8. MYCOPHENOLATE MOFETIL (CELLCEPT) [Concomitant]
     Indication: CUTANEOUS LUPUS ERYTHEMATOSUS
     Dates: start: 20110413, end: 20110425
  9. PRADAXA [Suspect]
     Indication: ATRIAL FIBRILLATION
     Dosage: 300 MG
     Route: 048
     Dates: start: 20110429, end: 20110505
  10. FLOMAX [Concomitant]
  11. MULTIVITAMIN [Concomitant]
  12. PREDNISONE [Concomitant]
     Indication: CUTANEOUS LUPUS ERYTHEMATOSUS
     Dates: start: 20100101
  13. PROSCAR [Concomitant]

REACTIONS (5)
  - DYSPNOEA [None]
  - HAEMATOCRIT DECREASED [None]
  - MYOCARDIAL INFARCTION [None]
  - FATIGUE [None]
  - HAEMATOCHEZIA [None]
